FAERS Safety Report 25456596 (Version 1)
Quarter: 2025Q2

REPORT INFORMATION
  Report Type: Spontaneous
  Country: CN (occurrence: CN)
  Receive Date: 20250619
  Receipt Date: 20250619
  Transmission Date: 20250717
  Serious: Yes (Hospitalization)
  Sender: Kenvue
  Company Number: CN-KENVUE-20250608362

PATIENT

DRUGS (2)
  1. RHINOCORT [Suspect]
     Active Substance: BUDESONIDE
     Indication: Rhinitis
     Route: 045
     Dates: start: 20250505, end: 20250505
  2. RHINOCORT [Suspect]
     Active Substance: BUDESONIDE
     Indication: Nasal obstruction

REACTIONS (2)
  - Nasal obstruction [Recovered/Resolved]
  - Drug hypersensitivity [Recovered/Resolved]

NARRATIVE: CASE EVENT DATE: 20250505
